FAERS Safety Report 7563561-X (Version None)
Quarter: 2011Q2

REPORT INFORMATION
  Report Type: 
  Country: None (occurrence: None)
  Receive Date: 20110622
  Receipt Date: 20110609
  Transmission Date: 20111010
  Serious: Yes (Other)
  Sender: FDA-Public Use
  Company Number: US-JNJFOC-20110605394

PATIENT
  Age: 22 Year
  Sex: Female

DRUGS (3)
  1. BENZACLIN [Concomitant]
  2. REMICADE [Suspect]
     Indication: CROHN'S DISEASE
     Route: 042
  3. EPIDUO [Concomitant]

REACTIONS (1)
  - ECZEMA HERPETICUM [None]
